FAERS Safety Report 7778466-9 (Version None)
Quarter: 2011Q3

REPORT INFORMATION
  Report Type: 
  Country: None (occurrence: None)
  Receive Date: 20110926
  Receipt Date: 20110916
  Transmission Date: 20111222
  Serious: Yes (Other)
  Sender: FDA-Public Use
  Company Number: FR-GLAXOSMITHKLINE-B0748248A

PATIENT
  Sex: Female

DRUGS (2)
  1. VALACYCLOVIR HYDROCHLORIDE [Suspect]
     Indication: HERPES ZOSTER
     Dosage: 500MG PER DAY
     Route: 048
     Dates: start: 20100501
  2. MABTHERA [Concomitant]
     Indication: CHEMOTHERAPY
     Route: 042

REACTIONS (5)
  - BACK PAIN [None]
  - AGITATION [None]
  - HAEMATOCHEZIA [None]
  - PRURITUS [None]
  - HEADACHE [None]
